FAERS Safety Report 24937359 (Version 1)
Quarter: 2025Q1

REPORT INFORMATION
  Report Type: Spontaneous
  Country: IT (occurrence: IT)
  Receive Date: 20250206
  Receipt Date: 20250206
  Transmission Date: 20250408
  Serious: Yes (Other)
  Sender: OTSUKA
  Company Number: None

PATIENT
  Age: 47 Year
  Sex: Male
  Weight: 85 kg

DRUGS (3)
  1. ABILIFY MAINTENA [Suspect]
     Active Substance: ARIPIPRAZOLE
     Indication: Bipolar disorder
     Route: 030
  2. EN [Suspect]
     Active Substance: DELORAZEPAM
     Indication: Anxiety
     Dosage: 2 DF, QD,0.5 MG 2 TABLETS/DAY
     Route: 048
     Dates: end: 20241008
  3. ASPIRIN [Concomitant]
     Active Substance: ASPIRIN
     Indication: Product used for unknown indication
     Route: 065

REACTIONS (6)
  - Cardiovascular disorder [Recovered/Resolved]
  - Dyslipidaemia [Recovered/Resolved]
  - Psychomotor hyperactivity [Recovered/Resolved]
  - Tardive dyskinesia [Recovered/Resolved]
  - Tremor [Recovering/Resolving]
  - Tachycardia [Recovering/Resolving]

NARRATIVE: CASE EVENT DATE: 20180504
